FAERS Safety Report 5078903-7 (Version None)
Quarter: 2006Q3

REPORT INFORMATION
  Report Type: 
  Country: None (occurrence: None)
  Receive Date: 20060814
  Receipt Date: 20060627
  Transmission Date: 20061208
  Serious: Yes (Other)
  Sender: FDA-Public Use
  Company Number: JP-BAYER-200610848BYL

PATIENT
  Age: 64 Year
  Sex: Male

DRUGS (7)
  1. 8-HOUR BAYER [Suspect]
     Indication: ANGINA PECTORIS
     Dosage: TOTAL DAILY DOSE: 100 MG  UNIT DOSE: 100 MG
     Route: 048
     Dates: start: 20031222, end: 20060421
  2. PANALDINE [Concomitant]
     Dosage: TOTAL DAILY DOSE: 100 MG  UNIT DOSE: 100 MG
     Route: 048
     Dates: start: 20031222, end: 20040629
  3. SIGMART [Concomitant]
     Dosage: TOTAL DAILY DOSE: 10 MG  UNIT DOSE: 5 MG
     Route: 048
  4. HERBESSER [Concomitant]
     Dosage: TOTAL DAILY DOSE: 60 MG  UNIT DOSE: 30 MG
     Route: 048
  5. MAGLAX [Concomitant]
     Dosage: TOTAL DAILY DOSE: 660 MG  UNIT DOSE: 330 MG
     Route: 048
     Dates: start: 20040629
  6. FAMOSTAGINE [Concomitant]
     Dosage: TOTAL DAILY DOSE: 40 MG  UNIT DOSE: 20 MG
     Route: 048
     Dates: start: 20040901
  7. CONSTAN [Concomitant]
     Dosage: TOTAL DAILY DOSE: 0.4 MG  UNIT DOSE: 0.4 MG
     Route: 048
     Dates: start: 20040406

REACTIONS (1)
  - PLATELET COUNT DECREASED [None]
